FAERS Safety Report 10159289 (Version 8)
Quarter: 2014Q4

REPORT INFORMATION
  Report Type: Report from Study
  Country: CA (occurrence: CA)
  Receive Date: 20140508
  Receipt Date: 20141226
  Transmission Date: 20150528
  Serious: Yes (Death, Other)
  Sender: FDA-Public Use
  Company Number: PHHY2012CA096114

PATIENT
  Age: 49 Year
  Sex: Female

DRUGS (3)
  1. SANDOSTATIN LAR DEPOT [Suspect]
     Active Substance: OCTREOTIDE ACETATE
     Dosage: 40 MG, EVERY 4 WEEKS
     Route: 030
     Dates: end: 20141124
  2. AFINITOR [Suspect]
     Active Substance: EVEROLIMUS
     Indication: NEUROENDOCRINE TUMOUR
     Dosage: 10 MG, QD
     Route: 048
  3. SANDOSTATIN LAR DEPOT [Suspect]
     Active Substance: OCTREOTIDE ACETATE
     Indication: NEUROENDOCRINE TUMOUR
     Dosage: 30 MG, EVERY 4 WEEKS
     Route: 030
     Dates: start: 20120629

REACTIONS (26)
  - Fluid intake reduced [Unknown]
  - Skin turgor decreased [Unknown]
  - Haematoma [Unknown]
  - Injection site haematoma [Unknown]
  - Depression [Unknown]
  - Blood pressure increased [Unknown]
  - Dehydration [Unknown]
  - Asthenia [Unknown]
  - Injection site induration [Unknown]
  - Injection site swelling [Unknown]
  - Metastases to spine [Unknown]
  - Myosclerosis [Unknown]
  - Injection site pain [Unknown]
  - Clostridium difficile infection [Recovered/Resolved]
  - Eating disorder [Unknown]
  - Malaise [Unknown]
  - Malignant neoplasm progression [Fatal]
  - Adrenal disorder [Unknown]
  - Metastases to pelvis [Unknown]
  - Gastric disorder [Unknown]
  - Musculoskeletal pain [Unknown]
  - Fatigue [Unknown]
  - Blood pressure decreased [Unknown]
  - Heart rate increased [Unknown]
  - Muscle swelling [Unknown]
  - Pain [Unknown]

NARRATIVE: CASE EVENT DATE: 20120919
